FAERS Safety Report 19783409 (Version 1)
Quarter: 2021Q3

REPORT INFORMATION
  Report Type: Spontaneous
  Country: US (occurrence: US)
  Receive Date: 20210903
  Receipt Date: 20210903
  Transmission Date: 20211014
  Serious: Yes (Death, Other)
  Sender: FDA-Public Use
  Company Number: US-HIKMA PHARMACEUTICALS USA INC.-US-H14001-21-55309

PATIENT
  Age: 44 Year
  Sex: Male

DRUGS (6)
  1. METHOTREXATE. [Suspect]
     Active Substance: METHOTREXATE
     Indication: PROPHYLAXIS
     Dosage: 2 G/M2 GIVEN ON DAY 1 FOR 1 CYCLE
     Route: 065
     Dates: start: 20200119, end: 20200216
  2. METHOTREXATE. [Suspect]
     Active Substance: METHOTREXATE
     Indication: ANGIOCENTRIC LYMPHOMA
     Dosage: 11?, 14?, 19?, AND 21?FEB?2020
     Route: 065
     Dates: start: 20200211, end: 20200221
  3. PEGASPARGASE [Suspect]
     Active Substance: PEGASPARGASE
     Indication: ANGIOCENTRIC LYMPHOMA
     Dosage: 2000 U/M2 GIVEN ON DAY 8 (26?JAN?2020) OF A 28?DAY CYCLE
     Route: 065
     Dates: start: 20200126, end: 2020
  4. IFOSFAMIDE. [Suspect]
     Active Substance: IFOSFAMIDE
     Indication: ANGIOCENTRIC LYMPHOMA
     Dosage: 1500 MG/M2 ON DAYS 2 TO 4 FOR 1 CYCLE
     Route: 065
     Dates: start: 20200120, end: 20200219
  5. ETOPOSIDE. [Suspect]
     Active Substance: ETOPOSIDE
     Indication: ANGIOCENTRIC LYMPHOMA
     Dosage: 100 MG/M2, ON DAYS 2 TO 4 FOR 1 CYCLE
     Route: 065
     Dates: start: 20200120, end: 20200219
  6. DEXAMETHASONE. [Suspect]
     Active Substance: DEXAMETHASONE
     Indication: ANGIOCENTRIC LYMPHOMA
     Dosage: 40 MG/D GIVEN ON DAYS 2 TO 4 FOR 1 CYCLE
     Route: 065
     Dates: start: 20200120, end: 20200219

REACTIONS (2)
  - Cytopenia [Unknown]
  - Renal injury [Unknown]

NARRATIVE: CASE EVENT DATE: 2020
